FAERS Safety Report 8541472-0 (Version None)
Quarter: 2012Q3

REPORT INFORMATION
  Report Type: 
  Country: None (occurrence: None)
  Receive Date: 20120726
  Receipt Date: 20120719
  Transmission Date: 20120928
  Serious: Yes (Other)
  Sender: FDA-Public Use
  Company Number: DE-ABBOTT-12P-062-0958221-00

PATIENT
  Sex: Male
  Weight: 109 kg

DRUGS (5)
  1. HUMIRA [Suspect]
     Indication: ANKYLOSING SPONDYLITIS
     Route: 058
     Dates: start: 20110202, end: 20120104
  2. HUMIRA [Suspect]
     Indication: PSORIATIC ARTHROPATHY
  3. METHOTREXATE [Concomitant]
     Indication: PSORIATIC ARTHROPATHY
  4. ACETAMINOPHEN [Concomitant]
     Indication: PSORIATIC ARTHROPATHY
     Dosage: 500 MG DAILY
  5. GLUCOCORTICOIDS [Concomitant]
     Indication: PSORIATIC ARTHROPATHY

REACTIONS (1)
  - GENITAL CYST [None]
